FAERS Safety Report 6931437 (Version 11)
Quarter: 2013Q2

REPORT INFORMATION
  Report Type: Spontaneous
  Country: US (occurrence: US)
  Receive Date: 20090309
  Receipt Date: 20130530
  Transmission Date: 20140414
  Serious: Yes (Hospitalization, Other)
  Sender: FDA-Public Use
  Company Number: US-ROCHE-596094

PATIENT
  Age: 15 Year
  Sex: Female
  Weight: 50.3 kg

DRUGS (4)
  1. ACCUTANE [Suspect]
     Indication: ACNE
     Route: 065
     Dates: start: 19980330, end: 19980427
  2. ACCUTANE [Suspect]
     Route: 065
     Dates: start: 19980428, end: 199808
  3. ACCUTANE [Suspect]
     Route: 065
     Dates: start: 19991105, end: 20000510
  4. AMPICILLIN [Concomitant]

REACTIONS (16)
  - Crohn^s disease [Unknown]
  - Inflammatory bowel disease [Unknown]
  - Gastrointestinal haemorrhage [Unknown]
  - Intestinal stenosis [Recovering/Resolving]
  - Intestinal obstruction [Recovering/Resolving]
  - Depression [Unknown]
  - Suicidal ideation [Unknown]
  - Anal fissure [Unknown]
  - Aspartate aminotransferase increased [Recovered/Resolved]
  - Blood cholesterol increased [Recovered/Resolved]
  - Dry skin [Unknown]
  - Blood bilirubin increased [Recovered/Resolved]
  - Blood triglycerides increased [Recovered/Resolved]
  - Lip dry [Unknown]
  - Nephrolithiasis [Unknown]
  - Osteopenia [Unknown]
